FAERS Safety Report 5330042-3 (Version None)
Quarter: 2007Q2

REPORT INFORMATION
  Report Type: 
  Country: None (occurrence: None)
  Receive Date: 20070521
  Receipt Date: 20070515
  Transmission Date: 20071010
  Serious: Yes (Death, Other)
  Sender: FDA-Public Use
  Company Number: US-ELI_LILLY_AND_COMPANY-US200703002692

PATIENT
  Age: 46 Year
  Sex: Male
  Weight: 72.562 kg

DRUGS (3)
  1. DEPAKOTE [Concomitant]
     Dates: start: 19990101
  2. LITHANE [Concomitant]
     Dates: start: 20040101
  3. ZYPREXA [Suspect]
     Dosage: 25 MG, UNK
     Dates: start: 19980923

REACTIONS (5)
  - CARDIOMEGALY [None]
  - DEATH [None]
  - DIABETES MELLITUS [None]
  - DIABETIC KETOACIDOSIS [None]
  - PRESCRIBED OVERDOSE [None]
